FAERS Safety Report 14893600 (Version 5)
Quarter: 2022Q3

REPORT INFORMATION
  Report Type: Report from Study
  Country: AR (occurrence: AR)
  Receive Date: 20180514
  Receipt Date: 20220927
  Transmission Date: 20221026
  Serious: Yes (Death, Other)
  Sender: FDA-Public Use
  Company Number: AR-SHIRE-AR201817346

PATIENT
  Age: 18 Year
  Sex: Male

DRUGS (18)
  1. IDURSULFASE [Suspect]
     Active Substance: IDURSULFASE
     Indication: Mucopolysaccharidosis II
     Dosage: 0.5 MILLIGRAM/KILOGRAM, 1/WEEK
     Route: 042
     Dates: start: 20070801
  2. OXCARBAZEPINE [Concomitant]
     Active Substance: OXCARBAZEPINE
     Indication: Seizure
     Dosage: UNK
     Route: 048
  3. RISPERIDONE [Concomitant]
     Active Substance: RISPERIDONE
     Indication: Behaviour disorder
     Dosage: UNK
     Route: 048
     Dates: end: 20160219
  4. SERETIDE [Concomitant]
     Active Substance: FLUTICASONE PROPIONATE\SALMETEROL XINAFOATE
     Indication: Bronchospasm
     Dosage: UNK
     Route: 055
  5. CLARITHROMYCIN [Concomitant]
     Active Substance: CLARITHROMYCIN
     Indication: Tuberculosis
     Dosage: UNK
     Dates: start: 20010714
  6. AZITHROMYCIN [Concomitant]
     Active Substance: AZITHROMYCIN
     Indication: Tuberculosis
     Dosage: UNK
     Route: 065
     Dates: start: 20020312, end: 20020314
  7. AZITHROMYCIN [Concomitant]
     Active Substance: AZITHROMYCIN
     Indication: Bronchitis
     Dosage: UNK
     Route: 048
     Dates: start: 20170406
  8. ENALAPRIL [Concomitant]
     Active Substance: ENALAPRIL
     Indication: Mitral valve incompetence
     Dosage: UNK
     Route: 048
     Dates: start: 20070903
  9. LEVOFLOXACIN [Concomitant]
     Active Substance: LEVOFLOXACIN
     Indication: Interstitial lung disease
     Dosage: UNK
     Route: 048
     Dates: start: 20140422
  10. DIPHENYLHYDANTOIN [Concomitant]
     Active Substance: PHENYTOIN
     Indication: Seizure
     Dosage: UNK
     Route: 042
     Dates: start: 20160216
  11. LORAZEPAM [Concomitant]
     Active Substance: LORAZEPAM
     Indication: Seizure
     Dosage: UNK
     Route: 042
     Dates: start: 20160216
  12. ALBUTEROL [Concomitant]
     Active Substance: ALBUTEROL
     Indication: Bronchitis
     Dosage: UNK
     Route: 055
     Dates: start: 20160216
  13. LEVETIRACETAM [Concomitant]
     Active Substance: LEVETIRACETAM
     Indication: Seizure
     Dosage: UNK
     Route: 042
     Dates: start: 20160217
  14. ZOLPIDEM [Concomitant]
     Active Substance: ZOLPIDEM TARTRATE
     Indication: Sedative therapy
     Dosage: UNK
     Route: 048
     Dates: start: 20180428
  15. EPINEPHRINE [Concomitant]
     Active Substance: EPINEPHRINE
     Indication: Cardiopulmonary failure
     Dosage: UNK
     Route: 042
     Dates: start: 20180429, end: 20180429
  16. SODIUM BICARBONATE [Concomitant]
     Active Substance: SODIUM BICARBONATE
     Indication: Cardiopulmonary failure
     Dosage: UNK
     Route: 042
     Dates: start: 20180429, end: 20180429
  17. CALCIUM CHLORIDE [Concomitant]
     Active Substance: CALCIUM CHLORIDE
     Indication: Cardiopulmonary failure
     Dosage: UNK
     Route: 042
     Dates: start: 20180429, end: 20180429
  18. DOPAMINE [Concomitant]
     Active Substance: DOPAMINE HYDROCHLORIDE
     Indication: Cardiopulmonary failure
     Dosage: UNK
     Route: 042
     Dates: start: 20180429, end: 20180429

REACTIONS (1)
  - Cardiopulmonary failure [Fatal]

NARRATIVE: CASE EVENT DATE: 20180429
